FAERS Safety Report 5481796-7 (Version None)
Quarter: 2007Q4

REPORT INFORMATION
  Report Type: 
  Country: None (occurrence: None)
  Receive Date: 20071010
  Receipt Date: 20071002
  Transmission Date: 20080405
  Serious: Yes (Other)
  Sender: FDA-Public Use
  Company Number: SG-ROXANE LABORATORIES, INC-2007-BP-22300RO

PATIENT
  Age: 43 Year
  Sex: Female

DRUGS (6)
  1. PROPRANOLOL [Suspect]
     Indication: THYROTOXIC CRISIS
     Route: 048
  2. PROPYLTHIOURACIL [Suspect]
     Indication: THYROTOXIC CRISIS
     Route: 048
  3. PROPYLTHIOURACIL [Suspect]
     Route: 048
  4. HYDROCORTISONE [Suspect]
     Indication: THYROTOXIC CRISIS
     Route: 042
  5. CEFTRIAXONE [Concomitant]
     Indication: URINARY TRACT INFECTION
     Route: 042
  6. ADENOSINE [Concomitant]
     Indication: SUPRAVENTRICULAR TACHYCARDIA
     Route: 042

REACTIONS (6)
  - CARDIAC ARREST [None]
  - CARDIO-RESPIRATORY ARREST [None]
  - CIRCULATORY COLLAPSE [None]
  - DILATATION ATRIAL [None]
  - MITRAL VALVE PROLAPSE [None]
  - SINUS BRADYCARDIA [None]
